FAERS Safety Report 9835986 (Version 1)
Quarter: 2014Q1

REPORT INFORMATION
  Report Type: Report from Study
  Country: US (occurrence: US)
  Receive Date: 20140122
  Receipt Date: 20140122
  Transmission Date: 20141002
  Serious: Yes (Death)
  Sender: FDA-Public Use
  Company Number: PHEH2014US001554

PATIENT
  Sex: Male

DRUGS (2)
  1. TOBI [Suspect]
     Indication: MALABSORPTION
     Dosage: UKN, BID
     Route: 055
     Dates: start: 201305
  2. TOBI [Suspect]
     Indication: CYSTIC FIBROSIS

REACTIONS (2)
  - Death [Fatal]
  - Drug administered to patient of inappropriate age [Unknown]
